FAERS Safety Report 23268351 (Version 2)
Quarter: 2024Q1

REPORT INFORMATION
  Report Type: Spontaneous
  Country: US (occurrence: US)
  Receive Date: 20231206
  Receipt Date: 20240318
  Transmission Date: 20240410
  Serious: Yes (Other)
  Sender: FDA-Public Use
  Company Number: US-ABBVIE-5526259

PATIENT
  Sex: Female

DRUGS (3)
  1. ESTRACE [Suspect]
     Active Substance: ESTRADIOL
     Indication: Product used for unknown indication
     Dosage: 1 GRAM; STRENGTH 0.01% ; FREQUENCY TEXT: EVERY DAY FOR 10 DAYS
     Route: 065
  2. ESTRACE [Suspect]
     Active Substance: ESTRADIOL
     Indication: Product used for unknown indication
     Dosage: STRENGTH 0.01% ; FREQUENCY TEXT: EVERY OTHER DAY FOR 20 DAYS
     Route: 065
  3. ESTRACE [Suspect]
     Active Substance: ESTRADIOL
     Indication: Product used for unknown indication
     Dosage: STRENGTH 0.01%
     Route: 065

REACTIONS (4)
  - Breast cancer [Unknown]
  - Joint dislocation [Unknown]
  - Urinary tract infection [Unknown]
  - Malaise [Unknown]
